FAERS Safety Report 5195389-2 (Version None)
Quarter: 2006Q4

REPORT INFORMATION
  Report Type: 
  Country: None (occurrence: None)
  Receive Date: 20061229
  Receipt Date: 20061220
  Transmission Date: 20070319
  Serious: Yes (Other)
  Sender: FDA-Public Use
  Company Number: GB-PFIZER INC-2006155534

PATIENT

DRUGS (2)
  1. SULFASALAZINE [Suspect]
  2. NIMODIPINE [Interacting]
     Indication: CEREBROVASCULAR ACCIDENT

REACTIONS (2)
  - CEREBROVASCULAR ACCIDENT [None]
  - DRUG INTERACTION [None]
